FAERS Safety Report 9675012 (Version 2)
Quarter: 2013Q4

REPORT INFORMATION
  Report Type: Spontaneous
  Country: US (occurrence: None)
  Receive Date: 20131105
  Receipt Date: 20131113
  Transmission Date: 20140711
  Serious: Yes (Other)
  Sender: FDA-Public Use
  Company Number: AUR-APL-2013-09210

PATIENT
  Age: 90 Year
  Sex: Female

DRUGS (2)
  1. CIPROFLOXACIN [Suspect]
     Indication: BACTERIAL INFECTION
  2. METHOTREXATE [Suspect]
     Indication: PSORIASIS

REACTIONS (5)
  - Mouth ulceration [None]
  - Abdominal discomfort [None]
  - Psoriasis [None]
  - Ulcer [None]
  - Toxicity to various agents [None]
